FAERS Safety Report 7530018-1 (Version None)
Quarter: 2011Q2

REPORT INFORMATION
  Report Type: 
  Country: None (occurrence: None)
  Receive Date: 20110607
  Receipt Date: 20110525
  Transmission Date: 20111010
  Serious: Yes (Hospitalization)
  Sender: FDA-Public Use
  Company Number: PHHY2011MX46340

PATIENT
  Sex: Female

DRUGS (4)
  1. CEFTRIAXONE [Concomitant]
     Indication: PNEUMONIA
     Dosage: 1 DF, QD
  2. EQUIN [Concomitant]
     Dosage: HALF TABLET
  3. SINEMET [Concomitant]
     Indication: PARKINSON'S DISEASE
     Dosage: 1.5 DF, QD
  4. DIOVAN [Suspect]
     Indication: HYPERTENSION
     Dosage: 1 DF, PER DAY
     Dates: start: 20100501

REACTIONS (4)
  - OBSTRUCTIVE AIRWAYS DISORDER [None]
  - ASTHENIA [None]
  - PNEUMONIA [None]
  - DYSPNOEA [None]
